FAERS Safety Report 15295372 (Version 2)
Quarter: 2018Q3

REPORT INFORMATION
  Report Type: Spontaneous
  Country: DE (occurrence: DE)
  Receive Date: 20180820
  Receipt Date: 20180827
  Transmission Date: 20181010
  Serious: Yes (Death)
  Sender: FDA-Public Use
  Company Number: PHHY2018DE071828

PATIENT
  Age: 40 Year
  Sex: Female
  Weight: 47 kg

DRUGS (19)
  1. LAMOTRIGINE. [Suspect]
     Active Substance: LAMOTRIGINE
     Dosage: 100 MG, UNK (1? IN MORNING AND 2 IN EVENING; PERIOD: WEEK 3)
     Route: 065
  2. LORAZEPAM. [Suspect]
     Active Substance: LORAZEPAM
     Indication: PRODUCT USED FOR UNKNOWN INDICATION
     Dosage: UNK, PRN
     Route: 065
  3. CITALOPRAM [Suspect]
     Active Substance: CITALOPRAM HYDROBROMIDE
     Indication: PRODUCT USED FOR UNKNOWN INDICATION
     Dosage: UNK
     Route: 065
  4. CLONAZEPAM. [Suspect]
     Active Substance: CLONAZEPAM
     Indication: PRODUCT USED FOR UNKNOWN INDICATION
     Dosage: UNK
     Route: 065
  5. LAMOTRIGINE. [Suspect]
     Active Substance: LAMOTRIGINE
     Indication: PRODUCT USED FOR UNKNOWN INDICATION
     Dosage: 200 MG, QD
     Route: 065
  6. VALDOXAN [Suspect]
     Active Substance: AGOMELATINE
     Dosage: 25 MG, UNK
     Route: 065
  7. CLOBAZAM [Suspect]
     Active Substance: CLOBAZAM
     Indication: SUICIDE ATTEMPT
  8. DIAMOX SEQUELS [Suspect]
     Active Substance: ACETAZOLAMIDE
     Indication: PRODUCT USED FOR UNKNOWN INDICATION
     Dosage: 1 DF, QD
     Route: 065
  9. CLOBAZAM [Suspect]
     Active Substance: CLOBAZAM
     Indication: PRODUCT USED FOR UNKNOWN INDICATION
     Dosage: UNK
     Route: 065
  10. CIPRAMIL [Suspect]
     Active Substance: CITALOPRAM HYDROBROMIDE
     Indication: PRODUCT USED FOR UNKNOWN INDICATION
     Dosage: UNK
     Route: 065
  11. VALDOXAN [Suspect]
     Active Substance: AGOMELATINE
     Indication: PRODUCT USED FOR UNKNOWN INDICATION
     Dosage: 50 MG, QD
     Route: 065
  12. VIMPAT [Suspect]
     Active Substance: LACOSAMIDE
     Indication: PRODUCT USED FOR UNKNOWN INDICATION
     Dosage: 250 MG, QD (ONE TABLET IN THE MORNING, ONE AND HALF A TABLET IN THE EVENING)
     Route: 065
  13. ACETAZOLAMID [Suspect]
     Active Substance: ACETAZOLAMIDE
     Indication: PRODUCT USED FOR UNKNOWN INDICATION
     Dosage: 1 DF, QD
     Route: 065
  14. LAMOTRIGINE. [Suspect]
     Active Substance: LAMOTRIGINE
     Dosage: 250 MG, QD (1 IN MORNING AND 1? IN EVENING; PERIOD: WEEK 1)
     Route: 065
  15. KEPPRA [Suspect]
     Active Substance: LEVETIRACETAM
     Indication: EPILEPSY
     Dosage: 3000 MG, QD (1000 MG, ONE AND HALF A TABLET IN THE MORNING, ONE AND HALF A TABLET IN THE EVENING)
     Route: 065
  16. LAMOTRIGINE. [Suspect]
     Active Substance: LAMOTRIGINE
     Dosage: 300 MG, QD (ONE TABLET IN THE MORNING, TWO TABLETS IN THE EVENING)
     Route: 065
  17. LAMOTRIGINE. [Suspect]
     Active Substance: LAMOTRIGINE
     Dosage: 350 MG, QD (ONE AND HALF A TABLET IN THE MORNING, TWO TABLETS IN THE EVENING)
     Route: 065
  18. VIMPAT [Suspect]
     Active Substance: LACOSAMIDE
     Dosage: 100 MG, UNK
     Route: 065
  19. CIPRAMIL [Suspect]
     Active Substance: CITALOPRAM HYDROBROMIDE
     Indication: SUICIDE ATTEMPT

REACTIONS (4)
  - Toxicity to various agents [Fatal]
  - Completed suicide [Fatal]
  - Overdose [Fatal]
  - Poisoning [Fatal]
